FAERS Safety Report 21669776 (Version 2)
Quarter: 2022Q4

REPORT INFORMATION
  Report Type: Report from Study
  Country: GB (occurrence: GB)
  Receive Date: 20221201
  Receipt Date: 20221229
  Transmission Date: 20230113
  Serious: Yes (Life-Threatening, Hospitalization, Other)
  Sender: FDA-Public Use
  Company Number: GB-Hikma Pharmaceuticals USA Inc.-GB-H14001-22-02707

PATIENT
  Age: 72 Year
  Sex: Female
  Weight: 35.5 kg

DRUGS (6)
  1. RAMIPRIL [Suspect]
     Active Substance: RAMIPRIL
     Indication: Product used for unknown indication
     Dosage: UNK (UNKNOWN)
     Route: 065
     Dates: start: 20201230, end: 20220527
  2. CARBOPLATIN [Suspect]
     Active Substance: CARBOPLATIN
     Indication: Anal squamous cell carcinoma
     Dosage: UNK (AUC 5)
     Route: 042
     Dates: start: 20220520, end: 20220520
  3. CARBOPLATIN [Suspect]
     Active Substance: CARBOPLATIN
     Dosage: UNK (AUC 4)
     Route: 042
     Dates: start: 20220617
  4. CARBOPLATIN [Suspect]
     Active Substance: CARBOPLATIN
     Dosage: UNK (AUC 4)
     Route: 042
     Dates: start: 20220617
  5. PACLITAXEL [Suspect]
     Active Substance: PACLITAXEL
     Indication: Anal squamous cell carcinoma
     Dosage: UNK (DOSE WAS REDUCED)
     Route: 042
     Dates: start: 20220617
  6. PACLITAXEL [Suspect]
     Active Substance: PACLITAXEL
     Dosage: 80 MILLIGRAM/SQ. METER
     Route: 042
     Dates: start: 20220520

REACTIONS (28)
  - Sepsis [Recovered/Resolved]
  - Acute kidney injury [Recovered/Resolved]
  - Febrile neutropenia [Recovered/Resolved]
  - Hypomagnesaemia [Recovering/Resolving]
  - White blood cell count decreased [Recovered/Resolved]
  - Neutrophil count decreased [Recovered/Resolved]
  - Neutropenia [Unknown]
  - Pleural effusion [Unknown]
  - Hypopnoea [Unknown]
  - Blood albumin decreased [Unknown]
  - Hypophagia [Unknown]
  - Rhinorrhoea [Unknown]
  - Sneezing [Unknown]
  - Lower respiratory tract infection [Unknown]
  - Staphylococcal infection [Unknown]
  - Catheter site infection [Unknown]
  - Monocyte count decreased [Unknown]
  - Lymphocyte count decreased [Unknown]
  - Condition aggravated [Recovering/Resolving]
  - Blood potassium decreased [Unknown]
  - Dehydration [Unknown]
  - C-reactive protein increased [Unknown]
  - Pyrexia [Recovered/Resolved]
  - Haemoglobin decreased [Unknown]
  - Red blood cell count decreased [Unknown]
  - Platelet count decreased [Unknown]
  - Haematocrit decreased [Unknown]
  - Constipation [Unknown]

NARRATIVE: CASE EVENT DATE: 20220527
